FAERS Safety Report 21962168 (Version 4)
Quarter: 2023Q1

REPORT INFORMATION
  Report Type: Spontaneous
  Country: US (occurrence: US)
  Receive Date: 20230207
  Receipt Date: 20230307
  Transmission Date: 20230417
  Serious: Yes (Other)
  Sender: FDA-Public Use
  Company Number: US-PFIZER INC-202300053369

PATIENT
  Age: 75 Year
  Sex: Female
  Weight: 70.31 kg

DRUGS (1)
  1. LORBRENA [Suspect]
     Active Substance: LORLATINIB
     Indication: Non-small cell lung cancer
     Dosage: 25 MG DIRECTED TO TAKE ONE TABLET BY MOUTH EVERY DAY
     Route: 048
     Dates: start: 20230124, end: 202301

REACTIONS (12)
  - Coordination abnormal [Recovered/Resolved]
  - Vertigo [Recovering/Resolving]
  - Vision blurred [Recovering/Resolving]
  - Ear pain [Recovering/Resolving]
  - Headache [Recovering/Resolving]
  - Toothache [Recovering/Resolving]
  - Gait inability [Unknown]
  - Facial pain [Unknown]
  - Dizziness [Unknown]
  - Illness [Unknown]
  - Visual impairment [Unknown]
  - Off label use [Unknown]

NARRATIVE: CASE EVENT DATE: 20230101
